FAERS Safety Report 4425810-6 (Version None)
Quarter: 2004Q3

REPORT INFORMATION
  Report Type: 
  Country: None (occurrence: None)
  Receive Date: 20040810
  Receipt Date: 20040727
  Transmission Date: 20050211
  Serious: Yes (Hospitalization)
  Sender: FDA-Public Use
  Company Number: 2004225497US

PATIENT
  Age: 40 Year
  Sex: Male

DRUGS (1)
  1. CAVERJECT [Suspect]
     Indication: ERECTILE DYSFUNCTION
     Dosage: 10 UG, PRN, INT CORP CAVERN

REACTIONS (6)
  - BLOOD GLUCOSE INCREASED [None]
  - ERYTHEMA [None]
  - PENILE PAIN [None]
  - PENILE SWELLING [None]
  - STREPTOCOCCAL SEPSIS [None]
  - TACHYCARDIA [None]
